FAERS Safety Report 25556424 (Version 1)
Quarter: 2025Q3

REPORT INFORMATION
  Report Type: Spontaneous
  Country: US (occurrence: None)
  Receive Date: 20250714
  Receipt Date: 20250714
  Transmission Date: 20251020
  Serious: Yes (Hospitalization)
  Sender: FDA-CTU
  Company Number: None

PATIENT
  Age: 16 Year
  Sex: Male

DRUGS (7)
  1. GAMMAPLEX [Suspect]
     Active Substance: HUMAN IMMUNOGLOBULIN G
     Indication: Chronic inflammatory demyelinating polyradiculoneuropathy
     Route: 042
     Dates: start: 20221010
  2. SODIUM CHLOR (250ML/BAG) [Concomitant]
  3. BACTERIOSTATIC WATER MDV [Concomitant]
  4. HEPARIN L/L FLUSH SYR (5ML) [Concomitant]
  5. NORMAL SALINE FLUSH (5ML) [Concomitant]
  6. DIPHENHYDRAMINE (ALLERGY ) [Concomitant]
  7. METHYLPRED SOD SUCC SDV [Concomitant]

REACTIONS (2)
  - Chronic inflammatory demyelinating polyradiculoneuropathy [None]
  - Condition aggravated [None]

NARRATIVE: CASE EVENT DATE: 20250429
